FAERS Safety Report 22107178 (Version 1)
Quarter: 2023Q1

REPORT INFORMATION
  Report Type: Spontaneous
  Country: US (occurrence: US)
  Receive Date: 20230317
  Receipt Date: 20230317
  Transmission Date: 20230418
  Serious: No
  Sender: FDA-Public Use
  Company Number: US-SA-SAC20230309000766

PATIENT
  Age: 74 Year
  Sex: Female

DRUGS (8)
  1. DUPIXENT [Suspect]
     Active Substance: DUPILUMAB
     Indication: Dermatitis atopic
     Dosage: 1 DF, QOW
     Route: 058
     Dates: start: 20220913
  2. ADVIL [Concomitant]
     Active Substance: IBUPROFEN
  3. CETIRIZINE [Concomitant]
     Active Substance: CETIRIZINE HYDROCHLORIDE
  4. CLOTRIMAZOLE [Concomitant]
     Active Substance: CLOTRIMAZOLE
  5. FLUCONAZOLE [Concomitant]
     Active Substance: FLUCONAZOLE
  6. MUPIROCIN [Concomitant]
     Active Substance: MUPIROCIN
  7. MAGNESIUM [Concomitant]
     Active Substance: MAGNESIUM
  8. MULTIVITAMINS + IRON [Concomitant]

REACTIONS (1)
  - Dermatitis atopic [Recovering/Resolving]
